FAERS Safety Report 6661725-0 (Version None)
Quarter: 2010Q1

REPORT INFORMATION
  Report Type: 
  Country: None (occurrence: None)
  Receive Date: 20100331
  Receipt Date: 20090520
  Transmission Date: 20100710
  Serious: Yes (Hospitalization)
  Sender: FDA-Public Use
  Company Number: US-BRISTOL-MYERS SQUIBB COMPANY-14620496

PATIENT
  Age: 58 Year
  Sex: Female
  Weight: 50 kg

DRUGS (5)
  1. ERBITUX [Suspect]
     Indication: COLORECTAL CANCER
     Dosage: ACTUAL DOSE WAS 800 MG BUT SHE RECEIVED 200 MG
     Route: 042
     Dates: start: 20090421, end: 20090421
  2. BENADRYL [Concomitant]
     Indication: PREMEDICATION
     Dosage: ADDITIONAL GIVEN 75 MG
  3. FOLINIC ACID [Concomitant]
  4. FLUOROURACIL [Concomitant]
  5. IRINOTECAN HYDROCHLORIDE [Concomitant]

REACTIONS (5)
  - BLOOD PRESSURE INCREASED [None]
  - DYSPHAGIA [None]
  - DYSPNOEA [None]
  - EYE SWELLING [None]
  - LACRIMATION INCREASED [None]
